FAERS Safety Report 9393662 (Version 2)
Quarter: 2013Q3

REPORT INFORMATION
  Report Type: Spontaneous
  Country: JP (occurrence: JP)
  Receive Date: 20130710
  Receipt Date: 20130723
  Transmission Date: 20140515
  Serious: Yes (Hospitalization)
  Sender: FDA-Public Use
  Company Number: JP-GLAXOSMITHKLINE-B0905684A

PATIENT
  Age: 57 Year
  Sex: Female

DRUGS (4)
  1. LAMICTAL [Suspect]
     Indication: SCHIZOAFFECTIVE DISORDER
     Dosage: 25MG PER DAY
     Route: 048
     Dates: start: 20130408, end: 20130421
  2. LAMICTAL [Suspect]
     Indication: SCHIZOAFFECTIVE DISORDER
     Dosage: 50MG PER DAY
     Route: 048
     Dates: start: 20130422, end: 20130501
  3. ABILIFY [Concomitant]
     Indication: SCHIZOAFFECTIVE DISORDER
     Dosage: 12MG PER DAY
     Route: 048
     Dates: start: 20130307, end: 20130410
  4. LONASEN [Concomitant]
     Indication: SCHIZOAFFECTIVE DISORDER
     Dosage: 8MG PER DAY
     Route: 048
     Dates: start: 20130425, end: 20130502

REACTIONS (13)
  - Erythema multiforme [Recovered/Resolved]
  - Erythema multiforme [Unknown]
  - Pyrexia [Unknown]
  - Skin exfoliation [Unknown]
  - Lymphocytic infiltration [Unknown]
  - Skin disorder [Unknown]
  - Tonsillitis [Unknown]
  - Rash [Unknown]
  - Erythema [Unknown]
  - Eyelid oedema [Unknown]
  - Lip oedema [Unknown]
  - Skin erosion [Unknown]
  - Pruritus [Unknown]
